FAERS Safety Report 6014369-8 (Version None)
Quarter: 2008Q4

REPORT INFORMATION
  Report Type: 
  Country: None (occurrence: None)
  Receive Date: 20081219
  Receipt Date: 20080514
  Transmission Date: 20090506
  Serious: No
  Sender: FDA-Public Use
  Company Number: A0727905A

PATIENT
  Age: 83 Year
  Sex: Male

DRUGS (2)
  1. AVODART [Suspect]
     Route: 048
     Dates: start: 20070301, end: 20080101
  2. LIPITOR [Concomitant]

REACTIONS (2)
  - BREAST PAIN [None]
  - BREAST TENDERNESS [None]
